FAERS Safety Report 4392010-8 (Version None)
Quarter: 2004Q3

REPORT INFORMATION
  Report Type: 
  Country: None (occurrence: None)
  Receive Date: 20040701
  Receipt Date: 20040610
  Transmission Date: 20050211
  Serious: Yes (Other)
  Sender: FDA-Public Use
  Company Number: USA040669837

PATIENT
  Age: 19 Year
  Sex: Male

DRUGS (2)
  1. STRATTERA [Suspect]
     Dates: start: 20030101, end: 20031101
  2. FLOVENT [Concomitant]

REACTIONS (3)
  - OESOPHAGEAL DISORDER [None]
  - SCAR [None]
  - THROAT IRRITATION [None]
